FAERS Safety Report 25706919 (Version 1)
Quarter: 2025Q3

REPORT INFORMATION
  Report Type: Spontaneous
  Country: US (occurrence: US)
  Receive Date: 20250820
  Receipt Date: 20250820
  Transmission Date: 20251021
  Serious: No
  Sender: SANOFI AVENTIS
  Company Number: US-SANOFI-02625576

PATIENT
  Age: 76 Year
  Sex: Female

DRUGS (2)
  1. DUPIXENT [Suspect]
     Active Substance: DUPILUMAB
     Indication: Pemphigoid
  2. OMALIZUMAB [Concomitant]
     Active Substance: OMALIZUMAB
     Dates: start: 202408

REACTIONS (2)
  - Pruritus [Unknown]
  - Rash [Unknown]
